FAERS Safety Report 5840388-8 (Version None)
Quarter: 2008Q3

REPORT INFORMATION
  Report Type: 
  Country: None (occurrence: None)
  Receive Date: 20080807
  Receipt Date: 20080729
  Transmission Date: 20090109
  Serious: Yes (Other)
  Sender: FDA-Public Use
  Company Number: 08-155

PATIENT
  Age: 53 Year
  Sex: Female
  Weight: 65.7716 kg

DRUGS (28)
  1. CITRACAL 250+D [Suspect]
     Indication: VITAMIN A
     Dosage: 2 DF, DAILY, ORAL; 5 DF, DAILY, ORAL; 750 MG, DAILY, ORAL; 1250 MG, DAILY, ORAL
     Route: 048
     Dates: start: 20070801, end: 20071001
  2. CITRACAL 250+D [Suspect]
     Indication: VITAMIN A
     Dosage: 2 DF, DAILY, ORAL; 5 DF, DAILY, ORAL; 750 MG, DAILY, ORAL; 1250 MG, DAILY, ORAL
     Route: 048
     Dates: start: 20060301, end: 20080101
  3. CITRACAL 250+D [Suspect]
     Indication: VITAMIN A
     Dosage: 2 DF, DAILY, ORAL; 5 DF, DAILY, ORAL; 750 MG, DAILY, ORAL; 1250 MG, DAILY, ORAL
     Route: 048
     Dates: start: 20080201, end: 20080301
  4. CITRACAL 250+D [Suspect]
     Indication: VITAMIN A
     Dosage: 2 DF, DAILY, ORAL; 5 DF, DAILY, ORAL; 750 MG, DAILY, ORAL; 1250 MG, DAILY, ORAL
     Route: 048
     Dates: start: 20080101
  5. CITRACAL 250+D [Suspect]
  6. CITRACAL CITRATE PETITES [Suspect]
     Indication: BONE DENSITY DECREASED
     Dosage: 400 MG, DAILY, ORAL
     Route: 048
     Dates: start: 20070101, end: 20070401
  7. CITRACAL + D [Suspect]
     Indication: BONE DENSITY DECREASED
     Dosage: 945 MG, DAILY ORAL
     Route: 048
     Dates: start: 20071001, end: 20071101
  8. CITRACAL + D [Suspect]
     Indication: BONE DENSITY DECREASED
     Dosage: 945 MG, DAILY, ORAL
     Route: 048
     Dates: start: 20071101, end: 20071201
  9. CITRACAL + D [Suspect]
     Indication: BONE DENSITY DECREASED
     Dosage: 1260  MG, DAILY, ORAL
     Route: 048
     Dates: start: 20071201, end: 20080201
  10. UTRADENSE CALCIUM CITRATE TABLETS [Suspect]
     Indication: BONE DENSITY DECREASED
     Dosage: 2 DF, DAILY, ORAL
     Route: 048
     Dates: start: 20060401, end: 20070601
  11. UTRADENSE CALCIUM CITRATE TABLETS [Suspect]
     Indication: BONE DENSITY DECREASED
     Dosage: 400 MG, DAILY, ORAL
     Route: 048
     Dates: start: 20060501, end: 20060801
  12. UTRADENSE CALCIUM CITRATE TABLETS [Suspect]
     Indication: BONE DENSITY DECREASED
     Dosage: 400 MG, DAILY, ORAL
     Route: 048
     Dates: start: 20061001, end: 20061201
  13. UTRADENSE CALCIUM CITRATE TABLETS [Suspect]
     Indication: BONE DENSITY DECREASED
     Dosage: 400 MG, DAILY, ORAL
     Route: 048
     Dates: start: 20070401, end: 20070601
  14. ALEVE [Suspect]
     Indication: ARTHRITIS
     Dosage: 220-440 MG, PRN, ORAL
     Route: 048
     Dates: start: 20070901
  15. ALEVE [Suspect]
     Indication: PAIN
     Dosage: 220-440 MG, PRN, ORAL
     Route: 048
     Dates: start: 20070901
  16. ALEVE [Suspect]
     Dosage: 220-440 MG, PRN, ORAL
     Route: 048
     Dates: start: 20070901
  17. SYNTHROID-THERAPY [Concomitant]
  18. KLOR-CON-THERAPY [Concomitant]
  19. IMITREX-THERAPY [Concomitant]
  20. NATURES BOUNTY CRANBERRY-THERAPY [Concomitant]
  21. NATURE MADE COMPLETE VITAMIN-THERAPY [Concomitant]
  22. NATURE MADE MAGNESIUM-THERAPY [Concomitant]
  23. IRON-THERAPY [Concomitant]
  24. VITAMIN E-THERAPY [Concomitant]
  25. VITAMIN C-THERAPY [Concomitant]
  26. VITAMIN B12-THERAPY [Concomitant]
  27. VITAMIN B2-THERAPY [Concomitant]
  28. SALMON OIL, MAREZINE, SIMETHICONE-THERAPY [Concomitant]

REACTIONS (10)
  - ARTHRITIS [None]
  - BRONCHITIS [None]
  - CANDIDIASIS [None]
  - CHEST DISCOMFORT [None]
  - DERMATITIS CONTACT [None]
  - MEDICATION ERROR [None]
  - ORAL PAIN [None]
  - PULMONARY GRANULOMA [None]
  - THROAT TIGHTNESS [None]
  - URINARY BLADDER HAEMORRHAGE [None]
